FAERS Safety Report 5933736-1 (Version None)
Quarter: 2008Q4

REPORT INFORMATION
  Report Type: 
  Country: None (occurrence: None)
  Receive Date: 20081024
  Receipt Date: 20081008
  Transmission Date: 20090506
  Serious: Yes (Other)
  Sender: FDA-Public Use
  Company Number: DSA_32524_2008

PATIENT
  Sex: Male

DRUGS (5)
  1. LORAZEPAM [Suspect]
     Dosage: (0.5 MG - 1.5 MG TRANSPLACENTAL), (0.5 - 1 TABLET, INTERMITTENT TRANSPLACENTAL)
     Route: 064
     Dates: start: 20071120, end: 20080201
  2. LORAZEPAM [Suspect]
     Dosage: (0.5 MG - 1.5 MG TRANSPLACENTAL), (0.5 - 1 TABLET, INTERMITTENT TRANSPLACENTAL)
     Route: 064
     Dates: start: 20080201, end: 20080201
  3. FLUOXETINE HYDROCHLORIDE [Suspect]
     Dosage: (40 MG - 45 MG TRANSPLACENTAL)
     Route: 064
     Dates: start: 20071120, end: 20080126
  4. CITALOPRAM HYDROBROMIDE [Suspect]
     Dosage: (20 MG QD TRANSPLACENTAL)
     Route: 064
     Dates: start: 20080119
  5. CORTISONE ACETATE TAB [Concomitant]

REACTIONS (3)
  - CAESAREAN SECTION [None]
  - MATERNAL DRUGS AFFECTING FOETUS [None]
  - SMALL FOR DATES BABY [None]
